FAERS Safety Report 8031192-3 (Version None)
Quarter: 2011Q4

REPORT INFORMATION
  Report Type: 
  Country: None (occurrence: None)
  Receive Date: 20111202
  Receipt Date: 20100816
  Transmission Date: 20120403
  Serious: Yes (Hospitalization, Other)
  Sender: FDA-Public Use
  Company Number: 2010SP044543

PATIENT
  Age: 31 Year
  Sex: Female
  Weight: 65.7716 kg

DRUGS (5)
  1. SYNTHROID [Concomitant]
  2. CALCITRIOL [Concomitant]
  3. PROZAC [Concomitant]
  4. NUVARING [Suspect]
     Indication: CONTRACEPTION
     Dates: start: 20080516, end: 20080801
  5. ROCALTROL [Concomitant]

REACTIONS (6)
  - PULMONARY EMBOLISM [None]
  - HYPERTENSION [None]
  - PULMONARY INFARCTION [None]
  - INAPPROPRIATE SCHEDULE OF DRUG ADMINISTRATION [None]
  - HERPES SIMPLEX [None]
  - DERMATITIS CONTACT [None]
